FAERS Safety Report 8820496 (Version 1)
Quarter: 2012Q4

REPORT INFORMATION
  Report Type: 
  Country: US (occurrence: US)
  Receive Date: 20121002
  Receipt Date: 20121002
  Transmission Date: 20130627
  Serious: No
  Sender: FDA-Public Use
  Company Number: US-COVIDIEN/TYCO HEALTHCARE/MALLINCKRODT-T201203046

PATIENT
  Age: 55 Year
  Sex: Male

DRUGS (12)
  1. EXALGO EXTENDED RELEASE [Suspect]
     Dosage: 12 mg, 2 tabs qd
     Route: 048
     Dates: start: 201205, end: 201207
  2. EXALGO EXTENDED RELEASE [Suspect]
     Dosage: 8 mg, bid
     Route: 048
     Dates: start: 201207
  3. NUCYNTA [Concomitant]
     Indication: PAIN
     Dosage: UNK
     Dates: end: 201205
  4. SYNTHROID [Concomitant]
     Indication: HYPOTHYROIDISM
     Dosage: UNK
  5. PRILOSEC                           /00661201/ [Concomitant]
     Indication: GASTROOESOPHAGEAL REFLUX DISEASE
     Dosage: UNK
  6. AMBIEN [Concomitant]
     Indication: INSOMNIA
     Dosage: UNK
  7. IMODIUM [Concomitant]
     Indication: DIARRHOEA
     Dosage: UNK
  8. COMPAZINE                          /00013302/ [Concomitant]
     Indication: NAUSEA
     Dosage: UNK
  9. LIPOFEN [Concomitant]
     Indication: BLOOD CHOLESTEROL INCREASED
     Dosage: UNK
  10. TYLENOL /00020001/ [Concomitant]
     Indication: PAIN
     Dosage: UNK
  11. ASA [Concomitant]
     Indication: PAIN
     Dosage: UNK
  12. VITAMINS                           /90003601/ [Concomitant]
     Indication: SUPPLEMENTATION THERAPY
     Dosage: UNK

REACTIONS (3)
  - Formication [Unknown]
  - Feeling jittery [Unknown]
  - Nausea [Unknown]
